FAERS Safety Report 16596973 (Version 1)
Quarter: 2019Q3

REPORT INFORMATION
  Report Type: Spontaneous
  Country: US (occurrence: US)
  Receive Date: 20190605
  Receipt Date: 20190605
  Transmission Date: 20191004
  Serious: No
  Sender: FDA-Public Use
  Company Number: None

PATIENT
  Age: 64 Year
  Sex: Female
  Weight: 65.3 kg

DRUGS (1)
  1. GLATIRAMER ACETATE 40MG [Suspect]
     Active Substance: GLATIRAMER ACETATE
     Indication: MULTIPLE SCLEROSIS
     Route: 058
     Dates: start: 201807, end: 201904

REACTIONS (4)
  - Injection site pruritus [None]
  - Injection site erythema [None]
  - Injection site swelling [None]
  - Skin reaction [None]

NARRATIVE: CASE EVENT DATE: 20181110
